FAERS Safety Report 8431503-0 (Version None)
Quarter: 2012Q2

REPORT INFORMATION
  Report Type: 
  Country: None (occurrence: None)
  Receive Date: 20120613
  Receipt Date: 20120602
  Transmission Date: 20120825
  Serious: Yes (Other)
  Sender: FDA-Public Use
  Company Number: CA-JNJFOC-20120601760

PATIENT
  Sex: Male
  Weight: 89 kg

DRUGS (2)
  1. REMICADE [Suspect]
     Indication: CROHN'S DISEASE
     Route: 042
     Dates: start: 20120602
  2. REMICADE [Suspect]
     Route: 042
     Dates: start: 20100929

REACTIONS (6)
  - DYSPNOEA [None]
  - CHEST DISCOMFORT [None]
  - SCLERAL DISCOLOURATION [None]
  - ARTHRALGIA [None]
  - INFUSION RELATED REACTION [None]
  - WHEEZING [None]
